FAERS Safety Report 4339219-7 (Version None)
Quarter: 2004Q2

REPORT INFORMATION
  Report Type: 
  Country: None (occurrence: None)
  Receive Date: 20040412
  Receipt Date: 20040331
  Transmission Date: 20050107
  Serious: Yes (Life-Threatening, Hospitalization)
  Sender: FDA-Public Use
  Company Number: 2004030019

PATIENT
  Age: 33 Year
  Sex: Male

DRUGS (7)
  1. DORAL [Suspect]
     Indication: INSOMNIA
     Dosage: 15 MG DAILY PO
     Route: 048
     Dates: start: 20031120, end: 20031126
  2. PERSPIRONE HCL HYDRATE [Suspect]
     Indication: SCHIZOPHRENIA
     Dosage: 8 MG DAILY PO
     Route: 048
     Dates: start: 20031120, end: 20040203
  3. HALOPERIDOL [Suspect]
     Indication: SCHIZOPHRENIA
     Dosage: 3 MG DAILY PO
     Route: 048
     Dates: start: 20040115, end: 20040121
  4. OLANZEPINE (OLANZAPINE) [Suspect]
     Indication: SCHIZOPHRENIA
     Dosage: 5 MG DAILY PO
     Route: 048
     Dates: start: 20040108, end: 20040114
  5. SENOSIDES (SENNA FRUIT) [Concomitant]
  6. BIPERIDEN HYDROCHLORIDE TAB [Concomitant]
  7. BERIZYM [Concomitant]

REACTIONS (11)
  - BLOOD PRESSURE SYSTOLIC DECREASED [None]
  - BODY TEMPERATURE DECREASED [None]
  - CARDIAC DISORDER [None]
  - ELECTROCARDIOGRAM ABNORMAL [None]
  - ELECTROCARDIOGRAM Q WAVES [None]
  - ELECTROCARDIOGRAM T WAVE INVERSION [None]
  - HEAD INJURY [None]
  - HYPOXIA [None]
  - OXYGEN SATURATION DECREASED [None]
  - PULMONARY EMBOLISM [None]
  - REFUSAL OF TREATMENT BY PATIENT [None]
